FAERS Safety Report 19203792 (Version 1)
Quarter: 2021Q2

REPORT INFORMATION
  Report Type: Spontaneous
  Country: US (occurrence: US)
  Receive Date: 20210430
  Receipt Date: 20210430
  Transmission Date: 20210717
  Serious: No
  Sender: FDA-Public Use
  Company Number: US-PFIZER INC-2021383495

PATIENT
  Age: 34 Year
  Sex: Female

DRUGS (2)
  1. SOMAVERT [Suspect]
     Active Substance: PEGVISOMANT
     Indication: ACROMEGALY
     Dosage: UNK
     Route: 058
     Dates: start: 202012
  2. SOMAVERT [Suspect]
     Active Substance: PEGVISOMANT
     Dosage: 10 MG, 1X/DAY
     Route: 058
     Dates: start: 2014

REACTIONS (5)
  - Hypertrichosis [Unknown]
  - Drug dose omission by device [Unknown]
  - Headache [Unknown]
  - Laziness [Unknown]
  - Treatment noncompliance [Unknown]

NARRATIVE: CASE EVENT DATE: 202103
